FAERS Safety Report 8129435-0 (Version None)
Quarter: 2012Q1

REPORT INFORMATION
  Report Type: 
  Country: None (occurrence: None)
  Receive Date: 20120103
  Receipt Date: 20110904
  Transmission Date: 20120608
  Serious: Yes (Hospitalization)
  Sender: FDA-Public Use
  Company Number: AE-2011-000580

PATIENT
  Age: 59 Year
  Sex: Female
  Weight: 72.5755 kg

DRUGS (8)
  1. ONDANSETRON [Concomitant]
  2. PEGINTERFERON ALFA-2A [Concomitant]
  3. ACTONEL [Concomitant]
  4. CALCIUM CARBONATE [Concomitant]
  5. SYNTHROID [Concomitant]
  6. VITAMIN D [Concomitant]
  7. INCIVEK [Suspect]
     Dosage: 1125 MCG (375 MCG, 3 IN 1 D), ORAL
     Route: 048
     Dates: start: 20110722
  8. RIBAVIRIN [Concomitant]

REACTIONS (7)
  - VOMITING [None]
  - DIZZINESS [None]
  - FEAR OF EATING [None]
  - DIARRHOEA [None]
  - INJECTION SITE ERYTHEMA [None]
  - NAUSEA [None]
  - HAEMORRHOIDS [None]
